FAERS Safety Report 5271003-2 (Version None)
Quarter: 2007Q1

REPORT INFORMATION
  Report Type: 
  Country: None (occurrence: None)
  Receive Date: 20061214
  Receipt Date: 20060717
  Transmission Date: 20070707
  Serious: Yes (Hospitalization, Other)
  Sender: FDA-Public Use
  Company Number: 2005140718

PATIENT
  Age: 71 Year
  Sex: Male
  Weight: 90.7194 kg

DRUGS (4)
  1. BEXTRA [Suspect]
     Indication: BACK DISORDER
     Dosage: 10 MG (10 MG, 1 IN 1 D)
     Dates: start: 20021111, end: 20041014
  2. VIOXX [Suspect]
     Indication: BACK DISORDER
     Dosage: 25 MG (25 MG 1 IN 1 D)
     Dates: start: 20020101, end: 20031009
  3. VIOXX [Suspect]
     Indication: OSTEOARTHRITIS
     Dosage: 25 MG (25 MG 1 IN 1 D)
     Dates: start: 20020101, end: 20031009
  4. ASA (ACETYLSALCYLIC ACID) [Concomitant]

REACTIONS (1)
  - MYOCARDIAL INFARCTION [None]
